FAERS Safety Report 18637992 (Version 8)
Quarter: 2021Q4

REPORT INFORMATION
  Report Type: Spontaneous
  Country: CZ (occurrence: CZ)
  Receive Date: 20201219
  Receipt Date: 20211227
  Transmission Date: 20220304
  Serious: Yes (Other)
  Sender: FDA-Public Use
  Company Number: CZ-KRKA-CZ2020K18581LIT

PATIENT
  Age: 53 Year
  Sex: Female

DRUGS (8)
  1. METOPROLOL [Interacting]
     Active Substance: METOPROLOL
     Indication: Prophylaxis
     Dosage: 200 MILLIGRAM TITRATED TO A DOSE OF 200 MG)
     Route: 048
     Dates: start: 201101
  2. METOPROLOL [Interacting]
     Active Substance: METOPROLOL
     Indication: Migraine
     Dosage: 50 MILLIGRAM, ONCE A DAY
     Route: 048
     Dates: start: 201601
  3. TOPIRAMATE [Suspect]
     Active Substance: TOPIRAMATE
     Indication: Migraine prophylaxis
     Dosage: 50 MILLIGRAM, ONCE A DAY (25 MG, BID)
     Route: 048
     Dates: start: 2016
  4. TOPIRAMATE [Suspect]
     Active Substance: TOPIRAMATE
     Indication: Migraine without aura
  5. VENLAFAXINE [Interacting]
     Active Substance: VENLAFAXINE HYDROCHLORIDE
     Indication: Prophylaxis
     Dosage: 150 MILLIGRAM, ONCE A DAY (150 MG, QD)
     Route: 065
  6. VENLAFAXINE [Interacting]
     Active Substance: VENLAFAXINE HYDROCHLORIDE
     Indication: Migraine
     Dosage: 37.5 MILLIGRAM, ONCE A DAY (37.5 MG, QD)
     Route: 065
  7. VENLAFAXINE [Interacting]
     Active Substance: VENLAFAXINE HYDROCHLORIDE
     Dosage: 75 MILLIGRAM, ONCE A DAY (75 MG, QD, UP TO DOSE A DOSE OF 75 MG DAILY)
     Route: 065
  8. VALPROATE [Concomitant]
     Active Substance: VALPROIC ACID
     Indication: Product used for unknown indication
     Dosage: UNK
     Route: 065

REACTIONS (12)
  - Circulatory collapse [Unknown]
  - Syncope [Unknown]
  - Asthenia [Unknown]
  - Sedation [Recovering/Resolving]
  - Confusional state [Recovering/Resolving]
  - Wrong technique in product usage process [Unknown]
  - Incorrect dose administered [Unknown]
  - Medication error [Unknown]
  - Off label use [Unknown]
  - Lethargy [Unknown]
  - Drug interaction [Unknown]
  - Drug titration error [Unknown]
